FAERS Safety Report 12926462 (Version 2)
Quarter: 2017Q2

REPORT INFORMATION
  Report Type: Spontaneous
  Country: US (occurrence: US)
  Receive Date: 20161109
  Receipt Date: 20170508
  Transmission Date: 20170830
  Serious: No
  Sender: FDA-Public Use
  Company Number: US-TEVA-705404ACC

PATIENT
  Age: 41 Year
  Sex: Female

DRUGS (1)
  1. PARAGARD T 380A [Suspect]
     Active Substance: COPPER
     Dates: start: 20081217

REACTIONS (2)
  - Device breakage [Recovered/Resolved]
  - Vaginal haemorrhage [Unknown]
